FAERS Safety Report 7900319-3 (Version None)
Quarter: 2011Q4

REPORT INFORMATION
  Report Type: 
  Country: None (occurrence: None)
  Receive Date: 20111104
  Receipt Date: 20111021
  Transmission Date: 20120403
  Serious: Yes (Other)
  Sender: FDA-Public Use
  Company Number: 1000023910

PATIENT
  Age: 48 Year
  Sex: Female
  Weight: 77.8 kg

DRUGS (9)
  1. SPIRIVA (TIOTROPPIUM BROMIDE) (TIOTROPIUM BROMIDE) [Concomitant]
  2. SERETIDE (SALMETEROL XINAFOATE, FLUTICASONE PROPIONATE) (SALMETEROL XI [Concomitant]
  3. BEROTEC (FENOTENOL HYDROBROMIDE) (FENOTEROL HYDROBROMIDE) [Concomitant]
  4. AVAMYS (FLUTICASONE FUROATE) (FLUTICASONE FUROATE) [Concomitant]
  5. BUPROPION (BUPROPION) (BUPROPION) [Concomitant]
  6. ROFLUMILAST (ROFLUMILAST) (TABLETS) [Suspect]
     Indication: CHRONIC OBSTRUCTIVE PULMONARY DISEASE
     Dosage: 1 DF (1 DOSAGE FORMS, 1 IN 1 D), ORAL
     Route: 048
     Dates: start: 20110807, end: 20110813
  7. UNSPECIFIED CORTICOID (CORTICOSTEROIDS) (CORTICOSTEROIDS) [Concomitant]
  8. UNSPECIFIED LONG ACTING BRONCHODILATOR (BRONCHODILATOR) (BRONCHODILATO [Concomitant]
  9. RIVOTRIL (CLONAZEPAM) (CLONAZEPAM) [Concomitant]

REACTIONS (4)
  - HEPATITIS [None]
  - NAUSEA [None]
  - FATIGUE [None]
  - VOMITING [None]
